FAERS Safety Report 6266852-8 (Version None)
Quarter: 2009Q3

REPORT INFORMATION
  Report Type: 
  Country: None (occurrence: None)
  Receive Date: 20090710
  Receipt Date: 20090710
  Transmission Date: 20100115
  Serious: Yes (Other)
  Sender: FDA-Public Use
  Company Number: None

PATIENT
  Age: 30 Year
  Sex: Female
  Weight: 88.905 kg

DRUGS (1)
  1. TOPIRAMATE [Suspect]
     Indication: MIGRAINE
     Dosage: 100 MG BID ORAL
     Route: 048

REACTIONS (3)
  - CONDITION AGGRAVATED [None]
  - MIGRAINE [None]
  - PRODUCT SUBSTITUTION ISSUE [None]
